FAERS Safety Report 5980284-9 (Version None)
Quarter: 2008Q4

REPORT INFORMATION
  Report Type: 
  Country: None (occurrence: None)
  Receive Date: 20081205
  Receipt Date: 20081125
  Transmission Date: 20090506
  Serious: Yes (Other)
  Sender: FDA-Public Use
  Company Number: US-WYE-H06996008

PATIENT
  Age: 66 Year
  Sex: Male
  Weight: 89.89 kg

DRUGS (1)
  1. ADVIL LIQUI-GELS [Suspect]
     Indication: HEADACHE
     Dosage: 1 TABLET DAILY AS NEEDED
     Route: 048
     Dates: start: 19880101, end: 20081124

REACTIONS (5)
  - ARTHRALGIA [None]
  - HEMIPLEGIA [None]
  - MUSCLE TWITCHING [None]
  - PAIN IN EXTREMITY [None]
  - SLUGGISHNESS [None]
